FAERS Safety Report 4509302-1 (Version None)
Quarter: 2004Q4

REPORT INFORMATION
  Report Type: 
  Country: None (occurrence: None)
  Receive Date: 20041123
  Receipt Date: 20041118
  Transmission Date: 20050328
  Serious: Yes (Disabling)
  Sender: FDA-Public Use
  Company Number: US-MERCK-0411USA03097

PATIENT
  Age: 53 Year
  Sex: Female

DRUGS (7)
  1. VIOXX [Suspect]
     Indication: ARTHRITIS
     Route: 048
     Dates: start: 19990101, end: 20040930
  2. EFFEXOR [Concomitant]
     Route: 065
  3. PREMARIN [Concomitant]
     Route: 065
  4. PREVACID [Concomitant]
     Route: 065
  5. ATENOLOL [Concomitant]
     Route: 065
  6. PLAVIX [Concomitant]
     Route: 065
  7. ENTEX CAP [Concomitant]
     Route: 065

REACTIONS (1)
  - CEREBROVASCULAR ACCIDENT [None]
